FAERS Safety Report 13407886 (Version 1)
Quarter: 2017Q2

REPORT INFORMATION
  Report Type: Spontaneous
  Country: BE (occurrence: BE)
  Receive Date: 20170406
  Receipt Date: 20170406
  Transmission Date: 20170830
  Serious: Yes (Other)
  Sender: FDA-Public Use
  Company Number: BE-ROCHE-1914677

PATIENT
  Age: 59 Year
  Sex: Female
  Weight: 49.5 kg

DRUGS (10)
  1. ZOVIRAX [Concomitant]
     Active Substance: ACYCLOVIR
     Route: 065
  2. MABTHERA [Suspect]
     Active Substance: RITUXIMAB
     Indication: EPSTEIN-BARR VIRUS INFECTION
     Route: 042
     Dates: start: 201207
  3. RAPAMUNE [Suspect]
     Active Substance: SIROLIMUS
     Indication: PRODUCT USED FOR UNKNOWN INDICATION
     Route: 065
  4. MEDROL [Suspect]
     Active Substance: METHYLPREDNISOLONE
     Indication: PRODUCT USED FOR UNKNOWN INDICATION
     Route: 065
  5. CELLCEPT [Suspect]
     Active Substance: MYCOPHENOLATE MOFETIL\MYCOPHENOLATE MOFETIL HYDROCHLORIDE
     Indication: PROPHYLAXIS AGAINST GRAFT VERSUS HOST DISEASE
     Route: 065
     Dates: start: 20120430, end: 20170215
  6. EMCONCOR MITIS [Concomitant]
     Route: 065
  7. PROGRAFT [Concomitant]
     Active Substance: TACROLIMUS
     Route: 065
  8. PANTOMED (PANTOPRAZOLE) [Concomitant]
     Route: 065
  9. ZOMETA [Concomitant]
     Active Substance: ZOLEDRONIC ACID
     Route: 042
  10. TAMBOCOR [Concomitant]
     Active Substance: FLECAINIDE ACETATE
     Route: 065

REACTIONS (14)
  - Staphylococcal sepsis [Unknown]
  - Epstein-Barr virus infection [Recovered/Resolved]
  - Hypogammaglobulinaemia [Unknown]
  - Oedema [Unknown]
  - Myopathy [Unknown]
  - Sinusitis [Unknown]
  - Pericardial effusion [Unknown]
  - Decreased appetite [Unknown]
  - Graft versus host disease [Unknown]
  - Peripheral sensorimotor neuropathy [Recovered/Resolved]
  - Pneumonia [Unknown]
  - Drug ineffective [Unknown]
  - Weight decreased [Unknown]
  - Neurological decompensation [Recovered/Resolved]

NARRATIVE: CASE EVENT DATE: 201207
